FAERS Safety Report 8069221-3 (Version None)
Quarter: 2012Q1

REPORT INFORMATION
  Report Type: 
  Country: None (occurrence: None)
  Receive Date: 20120125
  Receipt Date: 20120113
  Transmission Date: 20120608
  Serious: Yes (Other)
  Sender: FDA-Public Use
  Company Number: GB-BRISTOL-MYERS SQUIBB COMPANY-16357980

PATIENT
  Age: 42 Year
  Sex: Female

DRUGS (6)
  1. SIMVASTATIN [Suspect]
  2. ATORVASTATIN [Suspect]
  3. RAMIPRIL [Concomitant]
  4. ASPIRIN [Concomitant]
  5. SPIRONOLACTONE [Concomitant]
  6. METFORMIN HCL [Suspect]

REACTIONS (2)
  - AUTOIMMUNE HEPATITIS [None]
  - HEPATOTOXICITY [None]
